FAERS Safety Report 21302140 (Version 1)
Quarter: 2022Q3

REPORT INFORMATION
  Report Type: Report from Study
  Country: CA (occurrence: CA)
  Receive Date: 20220907
  Receipt Date: 20220907
  Transmission Date: 20221027
  Serious: Yes (Death)
  Sender: FDA-Public Use
  Company Number: CA-BEH-2022149346

PATIENT
  Age: 95 Year
  Sex: Male
  Weight: 86 kg

DRUGS (1)
  1. HIZENTRA [Suspect]
     Active Substance: HUMAN IMMUNOGLOBULIN G
     Indication: Secondary immunodeficiency
     Dosage: 22 GRAM, QOW
     Route: 065
     Dates: start: 20171219

REACTIONS (1)
  - Death [Fatal]
